FAERS Safety Report 12193971 (Version 1)
Quarter: 2016Q1

REPORT INFORMATION
  Report Type: Spontaneous
  Country: CA (occurrence: None)
  Receive Date: 20160318
  Receipt Date: 20160318
  Transmission Date: 20160526
  Serious: Yes (Death, Hospitalization)
  Sender: FDA-Public Use
  Company Number: None

PATIENT
  Age: 69 Year
  Sex: Female
  Weight: 81 kg

DRUGS (1)
  1. MEMANTINE HYDROCHLORIDE [Suspect]
     Active Substance: MEMANTINE HYDROCHLORIDE
     Dates: end: 20090728

REACTIONS (8)
  - Liver function test abnormal [None]
  - Clumsiness [None]
  - Heart rate increased [None]
  - Pneumonia [None]
  - Sepsis [None]
  - White blood cell count increased [None]
  - Pneumothorax [None]
  - Lung cancer metastatic [None]

NARRATIVE: CASE EVENT DATE: 20090809
